FAERS Safety Report 18941650 (Version 1)
Quarter: 2021Q1

REPORT INFORMATION
  Report Type: Spontaneous
  Country: FR (occurrence: FR)
  Receive Date: 20210225
  Receipt Date: 20210225
  Transmission Date: 20210420
  Serious: Yes (Hospitalization)
  Sender: FDA-Public Use
  Company Number: FR-TEVA-2021-FR-1882970

PATIENT
  Age: 53 Year
  Sex: Male
  Weight: 84 kg

DRUGS (3)
  1. AMOXICILLINE SODIQUE [Suspect]
     Active Substance: AMOXICILLIN
     Indication: ARTHRITIS BACTERIAL
     Dosage: 6 GRAM
     Route: 048
     Dates: start: 20201228, end: 20210128
  2. RIFAMPICINE [Suspect]
     Active Substance: RIFAMPIN
     Indication: ARTHRITIS BACTERIAL
     Dosage: 900 MG
     Route: 048
     Dates: start: 20201228, end: 20210128
  3. LEVOFLOXACINE [Suspect]
     Active Substance: LEVOFLOXACIN
     Indication: ARTHRITIS BACTERIAL
     Dosage: 750 MG
     Route: 048
     Dates: start: 20201228, end: 20210128

REACTIONS (5)
  - Cholestasis [Recovering/Resolving]
  - Rash maculo-papular [Recovering/Resolving]
  - Influenza like illness [Recovering/Resolving]
  - Thrombocytopenia [Recovering/Resolving]
  - Lipase increased [Not Recovered/Not Resolved]

NARRATIVE: CASE EVENT DATE: 20210123
